FAERS Safety Report 11078418 (Version 2)
Quarter: 2015Q2

REPORT INFORMATION
  Report Type: Report from Study
  Country: US (occurrence: US)
  Receive Date: 20150430
  Receipt Date: 20150518
  Transmission Date: 20150821
  Serious: Yes (Hospitalization, Other)
  Sender: FDA-Public Use
  Company Number: US-BIOGENIDEC-2015BI054323

PATIENT
  Age: 65 Year
  Sex: Female

DRUGS (2)
  1. TYSABRI [Suspect]
     Active Substance: NATALIZUMAB
     Indication: MULTIPLE SCLEROSIS
     Route: 042
     Dates: end: 20150319
  2. TYSABRI [Suspect]
     Active Substance: NATALIZUMAB
     Indication: MULTIPLE SCLEROSIS
     Route: 042
     Dates: start: 20120213

REACTIONS (9)
  - Kidney infection [Unknown]
  - Pyrexia [Recovered/Resolved]
  - Cardiac infection [Unknown]
  - Pneumonia [Unknown]
  - Blood pressure abnormal [Recovered/Resolved]
  - Infection [Not Recovered/Not Resolved]
  - Genital disorder female [Recovered/Resolved]
  - Uterine prolapse [Unknown]
  - Bladder disorder [Recovered/Resolved]

NARRATIVE: CASE EVENT DATE: 20150415
